FAERS Safety Report 7535548-4 (Version None)
Quarter: 2011Q2

REPORT INFORMATION
  Report Type: 
  Country: None (occurrence: None)
  Receive Date: 20110609
  Receipt Date: 20110531
  Transmission Date: 20111010
  Serious: Yes (Death, Other)
  Sender: FDA-Public Use
  Company Number: TW-JNJFOC-20110600981

PATIENT
  Age: 54 Year
  Sex: Male

DRUGS (7)
  1. CLONAZEPAM [Concomitant]
     Route: 065
  2. TRAZODONE HCL [Concomitant]
     Route: 065
  3. MAGNESIUM OXIDE [Concomitant]
     Route: 065
  4. INVEGA [Suspect]
     Indication: SCHIZOPHRENIA
     Route: 048
     Dates: start: 20090915
  5. FLUNITRAZEPAM [Concomitant]
     Route: 065
  6. PURSENNID [Concomitant]
     Route: 065
  7. ARTANE [Concomitant]
     Route: 065

REACTIONS (4)
  - SEPTIC SHOCK [None]
  - EMPYEMA [None]
  - PNEUMONIA [None]
  - ILEUS [None]
